FAERS Safety Report 4716683-2 (Version None)
Quarter: 2005Q3

REPORT INFORMATION
  Report Type: 
  Country: None (occurrence: None)
  Receive Date: 20050719
  Receipt Date: 20050707
  Transmission Date: 20060218
  Serious: Yes (Hospitalization)
  Sender: FDA-Public Use
  Company Number: US-BRISTOL-MYERS SQUIBB COMPANY-13030101

PATIENT

DRUGS (2)
  1. BARACLUDE [Suspect]
  2. ANTIHYPERTENSIVE [Concomitant]

REACTIONS (2)
  - SWELLING [None]
  - VOMITING [None]
